FAERS Safety Report 13561802 (Version 1)
Quarter: 2017Q2

REPORT INFORMATION
  Report Type: Spontaneous
  Country: US (occurrence: US)
  Receive Date: 20170518
  Receipt Date: 20170518
  Transmission Date: 20170830
  Serious: No
  Sender: FDA-Public Use
  Company Number: US-ELI_LILLY_AND_COMPANY-US201705005846

PATIENT
  Sex: Male

DRUGS (1)
  1. TRULICITY [Suspect]
     Active Substance: DULAGLUTIDE
     Indication: TYPE 2 DIABETES MELLITUS
     Dosage: 1 DF, WEEKLY (1/W)
     Route: 065
     Dates: start: 20170511

REACTIONS (8)
  - Feeling abnormal [Recovering/Resolving]
  - Nausea [Recovering/Resolving]
  - Drug ineffective [Recovering/Resolving]
  - Blood glucose abnormal [Recovering/Resolving]
  - Muscle spasms [Recovering/Resolving]
  - Diarrhoea [Recovering/Resolving]
  - Fatigue [Recovering/Resolving]
  - Sleep disorder [Recovering/Resolving]
